FAERS Safety Report 16359066 (Version 2)
Quarter: 2019Q3

REPORT INFORMATION
  Report Type: Spontaneous
  Country: US (occurrence: US)
  Receive Date: 20190527
  Receipt Date: 20190729
  Transmission Date: 20191004
  Serious: Yes (Other)
  Sender: FDA-Public Use
  Company Number: US-SA-2019SA138113

PATIENT
  Age: 30 Year
  Sex: Female

DRUGS (2)
  1. LEMTRADA [Suspect]
     Active Substance: ALEMTUZUMAB
     Dosage: UNK UNK, QD
     Route: 041
     Dates: start: 20180618, end: 20180622
  2. VALACYCLOVIR [Concomitant]
     Active Substance: VALACYCLOVIR HYDROCHLORIDE
     Dosage: 500 UNK, QD
     Route: 048

REACTIONS (8)
  - Basedow^s disease [Unknown]
  - Thyroid cyst [Unknown]
  - Temperature intolerance [Unknown]
  - Fatigue [Unknown]
  - Muscular weakness [Unknown]
  - Tremor [Unknown]
  - Hyperhidrosis [Unknown]
  - Heart rate irregular [Unknown]

NARRATIVE: CASE EVENT DATE: 20190322
